FAERS Safety Report 10086441 (Version 2)
Quarter: 2014Q4

REPORT INFORMATION
  Report Type: Spontaneous
  Country: JP (occurrence: JP)
  Receive Date: 20140418
  Receipt Date: 20141028
  Transmission Date: 20150528
  Serious: Yes (Life-Threatening, Hospitalization)
  Sender: FDA-Public Use
  Company Number: JP-PFIZER INC-2014105545

PATIENT
  Age: 35 Year
  Sex: Female

DRUGS (8)
  1. RIVOTRIL [Concomitant]
     Active Substance: CLONAZEPAM
  2. BUFFERIN [Concomitant]
     Active Substance: ASPIRIN
  3. ANGE-28 [Suspect]
     Active Substance: ETHINYL ESTRADIOL\LEVONORGESTREL
     Indication: MENSTRUATION IRREGULAR
     Dosage: 1 DF, 1X/DAY
     Route: 048
     Dates: start: 20040831, end: 20140117
  4. LOXONIN [Concomitant]
     Active Substance: LOXOPROFEN SODIUM
  5. DEPAS [Concomitant]
     Active Substance: ETIZOLAM
  6. MYONAL [Concomitant]
     Active Substance: EPERISONE HYDROCHLORIDE
  7. TERRANAS [Concomitant]
  8. RELPAX [Concomitant]
     Active Substance: ELETRIPTAN HYDROBROMIDE

REACTIONS (1)
  - Subarachnoid haemorrhage [Unknown]

NARRATIVE: CASE EVENT DATE: 20140118
